FAERS Safety Report 10469143 (Version 1)
Quarter: 2014Q3

REPORT INFORMATION
  Report Type: Spontaneous
  Country: CA (occurrence: None)
  Receive Date: 20140919
  Receipt Date: 20140919
  Transmission Date: 20150326
  Serious: Yes (Death, Other)
  Sender: FDA-Public Use
  Company Number: COR_00065_2014

PATIENT
  Age: 55 Year
  Sex: Male

DRUGS (3)
  1. BEVACIZUMAB [Concomitant]
     Active Substance: BEVACIZUMAB
  2. DEXAMETHASONE. [Concomitant]
     Active Substance: DEXAMETHASONE
  3. LOMUSTINE (LOMUSTINE) [Suspect]
     Active Substance: LOMUSTINE
     Indication: GLIOBLASTOMA
     Dosage: (DF)
     Dates: start: 2011, end: 2012

REACTIONS (7)
  - Malignant neoplasm progression [None]
  - Glioblastoma [None]
  - Aphasia [None]
  - Hemiparesis [None]
  - Fatigue [None]
  - Performance status decreased [None]
  - Bradyphrenia [None]
